FAERS Safety Report 5520429-8 (Version None)
Quarter: 2007Q4

REPORT INFORMATION
  Report Type: 
  Country: None (occurrence: None)
  Receive Date: 20071114
  Receipt Date: 20071030
  Transmission Date: 20080405
  Serious: Yes (Other)
  Sender: FDA-Public Use
  Company Number: PRA1-2007-00033

PATIENT
  Age: 14 Year
  Sex: Male
  Weight: 59.9 kg

DRUGS (1)
  1. 485 (METHYLPHENIDATE) VS PLACEBO(CODE NOT BROKEN) TRANSDERMAL PATCH [Suspect]
     Indication: ATTENTION DEFICIT/HYPERACTIVITY DISORDER
     Dosage: 15 MG, 1X/DAY;QD, TRANSDERMAL
     Route: 062
     Dates: start: 20071010, end: 20071022

REACTIONS (3)
  - DIZZINESS [None]
  - LOSS OF CONSCIOUSNESS [None]
  - SYNCOPE [None]
